FAERS Safety Report 5633128-9 (Version None)
Quarter: 2008Q1

REPORT INFORMATION
  Report Type: 
  Country: None (occurrence: None)
  Receive Date: 20080221
  Receipt Date: 20080212
  Transmission Date: 20080703
  Serious: Yes (Hospitalization)
  Sender: FDA-Public Use
  Company Number: FR-AVENTIS-200810591FR

PATIENT
  Age: 67 Year
  Sex: Female

DRUGS (5)
  1. CLAFORAN [Suspect]
     Route: 042
     Dates: start: 20080103, end: 20080104
  2. AUGMENTIN '125' [Suspect]
     Route: 042
     Dates: start: 20080102, end: 20080102
  3. BRICANYL [Concomitant]
  4. ATROVENT [Concomitant]
  5. LOVENOX [Concomitant]
     Indication: PROPHYLAXIS
     Route: 058
     Dates: start: 20080102

REACTIONS (4)
  - DERMATITIS EXFOLIATIVE [None]
  - GENERALISED ERYTHEMA [None]
  - OEDEMA PERIPHERAL [None]
  - PRURITUS [None]
